FAERS Safety Report 16350298 (Version 1)
Quarter: 2019Q2

REPORT INFORMATION
  Report Type: Report from Study
  Country: None (occurrence: US)
  Receive Date: 20190524
  Receipt Date: 20190524
  Transmission Date: 20190711
  Serious: Yes (Other)
  Sender: FDA-Public Use
  Company Number: US-ABBVIE-18K-163-2579245-00

PATIENT
  Age: 55 Year
  Sex: Female

DRUGS (1)
  1. HUMIRA [Suspect]
     Active Substance: ADALIMUMAB
     Indication: RHEUMATOID ARTHRITIS
     Route: 058
     Dates: start: 20181109

REACTIONS (21)
  - Loose tooth [Recovered/Resolved]
  - Pain in extremity [Recovering/Resolving]
  - Arthralgia [Recovering/Resolving]
  - Fall [Unknown]
  - Taste disorder [Unknown]
  - Wrist fracture [Unknown]
  - Pain [Not Recovered/Not Resolved]
  - Blood iron decreased [Unknown]
  - Joint range of motion decreased [Not Recovered/Not Resolved]
  - Toothache [Recovered/Resolved]
  - Loss of consciousness [Unknown]
  - Joint stiffness [Not Recovered/Not Resolved]
  - Oral discomfort [Recovered/Resolved]
  - Peripheral swelling [Recovering/Resolving]
  - Tongue discomfort [Recovered/Resolved]
  - Dizziness [Unknown]
  - Joint swelling [Not Recovered/Not Resolved]
  - Musculoskeletal stiffness [Not Recovered/Not Resolved]
  - Discomfort [Unknown]
  - Oral discomfort [Recovering/Resolving]
  - Depression [Unknown]

NARRATIVE: CASE EVENT DATE: 20181109
